FAERS Safety Report 7644492-3 (Version None)
Quarter: 2011Q3

REPORT INFORMATION
  Report Type: 
  Country: None (occurrence: None)
  Receive Date: 20110729
  Receipt Date: 20110721
  Transmission Date: 20111222
  Serious: Yes (Hospitalization)
  Sender: FDA-Public Use
  Company Number: JP-ROCHE-792561

PATIENT
  Sex: Female

DRUGS (2)
  1. ADRENALIN IN OIL INJ [Suspect]
     Indication: RHEUMATOID ARTHRITIS
     Dosage: DRUG:ADRENAL HORMONE PREPARATIONS, PERORAL AGENT
     Route: 048
  2. ACTEMRA [Suspect]
     Indication: RHEUMATOID ARTHRITIS
     Dosage: DOSAGE IS UNCERTAIN
     Route: 041
     Dates: start: 20100701, end: 20110523

REACTIONS (1)
  - INTERVERTEBRAL DISCITIS [None]
